FAERS Safety Report 13687890 (Version 1)
Quarter: 2017Q2

REPORT INFORMATION
  Report Type: Report from Study
  Country: None (occurrence: SE)
  Receive Date: 20170626
  Receipt Date: 20170626
  Transmission Date: 20170830
  Serious: Yes (Hospitalization)
  Sender: FDA-Public Use
  Company Number: SE-ABBVIE-17K-150-2018304-00

PATIENT
  Age: 72 Year
  Sex: Male

DRUGS (2)
  1. DUODOPA [Suspect]
     Active Substance: CARBIDOPA\LEVODOPA
     Dosage: MD: 9.0 ML??CD: 2.6 ML/H??XD: 1.5 ML
     Route: 050
     Dates: start: 20170615
  2. DUODOPA [Suspect]
     Active Substance: CARBIDOPA\LEVODOPA
     Indication: PARKINSON^S DISEASE
     Route: 050
     Dates: start: 20170529, end: 20170615

REACTIONS (3)
  - Procedural anxiety [Not Recovered/Not Resolved]
  - Dermatillomania [Not Recovered/Not Resolved]
  - Confusion postoperative [Not Recovered/Not Resolved]

NARRATIVE: CASE EVENT DATE: 20170615
